FAERS Safety Report 5734303-5 (Version None)
Quarter: 2008Q2

REPORT INFORMATION
  Report Type: 
  Country: None (occurrence: None)
  Receive Date: 20080507
  Receipt Date: 20080422
  Transmission Date: 20081010
  Serious: Yes (Other)
  Sender: FDA-Public Use
  Company Number: CERZ-1000188

PATIENT
  Age: 35 Year
  Sex: Female
  Weight: 62 kg

DRUGS (2)
  1. CEREZYME [Suspect]
     Indication: GAUCHER'S DISEASE
     Dosage: 3600 U, Q2W; 2400 U, Q2W
     Dates: end: 20080101
  2. CEREZYME [Suspect]
     Indication: GAUCHER'S DISEASE
     Dosage: 3600 U, Q2W; 2400 U, Q2W
     Dates: start: 20080225

REACTIONS (9)
  - ABASIA [None]
  - ASTHENIA [None]
  - BONE PAIN [None]
  - BONE SWELLING [None]
  - C-REACTIVE PROTEIN INCREASED [None]
  - DRUG EXPOSURE DURING PREGNANCY [None]
  - DYSSTASIA [None]
  - PREGNANCY [None]
  - SERUM FERRITIN INCREASED [None]
